FAERS Safety Report 4457631-2 (Version None)
Quarter: 2004Q3

REPORT INFORMATION
  Report Type: 
  Country: None (occurrence: None)
  Receive Date: 20040922
  Receipt Date: 20040816
  Transmission Date: 20050211
  Serious: Yes (Death)
  Sender: FDA-Public Use
  Company Number: 2004S1002442

PATIENT
  Age: 58 Year
  Sex: Male
  Weight: 79.8331 kg

DRUGS (8)
  1. CLOZAPINE [Suspect]
     Indication: SCHIZOAFFECTIVE DISORDER
     Dosage: 25MG, TID, ORAL
     Route: 048
     Dates: start: 20010417
  2. CLOZAPINE [Suspect]
     Indication: SCHIZOAFFECTIVE DISORDER
     Dosage: 400MG HS, ORAL
     Route: 048
     Dates: start: 20010417
  3. BENZOTROPINE (PUREPAC) [Suspect]
     Dosage: 2MG BID
  4. GEODON [Suspect]
     Dosage: 160 MG QAM AND 80MG Q  5PM
  5. BISACODYL [Concomitant]
  6. MAGNESIUM CITRATE [Concomitant]
  7. POLYEHTYLENE GLYCOL [Concomitant]
  8. DIVALPROEX SODIUM [Concomitant]

REACTIONS (5)
  - CARDIO-RESPIRATORY ARREST [None]
  - CONSTIPATION [None]
  - INTESTINAL OBSTRUCTION [None]
  - PNEUMONIA ASPIRATION [None]
  - SEPSIS [None]
